FAERS Safety Report 25620500 (Version 1)
Quarter: 2025Q3

REPORT INFORMATION
  Report Type: Spontaneous
  Country: US (occurrence: US)
  Receive Date: 20250730
  Receipt Date: 20250730
  Transmission Date: 20251020
  Serious: Yes (Other)
  Sender: SANOFI AVENTIS
  Company Number: US-SANOFI-02597317

PATIENT
  Age: 65 Year
  Sex: Female

DRUGS (2)
  1. LANTUS SOLOSTAR [Suspect]
     Active Substance: INSULIN GLARGINE
     Indication: Type 2 diabetes mellitus
     Dosage: 62 IU, QD
     Dates: start: 2025
  2. TOUJEO [Concomitant]
     Active Substance: INSULIN GLARGINE

REACTIONS (3)
  - Endocrine ophthalmopathy [Unknown]
  - Blindness [Unknown]
  - Product dispensing issue [Unknown]

NARRATIVE: CASE EVENT DATE: 20250101
